FAERS Safety Report 8803835 (Version 1)
Quarter: 2012Q4

REPORT INFORMATION
  Report Type: 
  Country: US (occurrence: US)
  Receive Date: 20120924
  Receipt Date: 20120924
  Transmission Date: 20130627
  Serious: No
  Sender: FDA-Public Use
  Company Number: US-PFIZER INC-2012233969

PATIENT
  Sex: Male

DRUGS (8)
  1. TIKOSYN [Suspect]
     Dosage: UNK
     Dates: end: 201209
  2. NEURONTIN [Suspect]
     Dosage: UNK
  3. METOPROLOL TARTRATE [Suspect]
     Dosage: UNK
  4. PROVIGIL [Suspect]
     Indication: ASTHENIA
     Dosage: UNK
  5. CYMBALTA [Suspect]
     Indication: PAIN
     Dosage: UNK
  6. WARFARIN [Suspect]
     Indication: ANTICOAGULANT THERAPY
     Dosage: UNK
  7. PERCOCET [Suspect]
     Dosage: UNK
  8. TAPENTADOL [Suspect]
     Dosage: UNK

REACTIONS (5)
  - Back disorder [Unknown]
  - Arrhythmia [Unknown]
  - Pain [Unknown]
  - Dizziness [Unknown]
  - Asthenia [Unknown]
